FAERS Safety Report 7682879 (Version 14)
Quarter: 2012Q4

REPORT INFORMATION
  Report Type: 
  Country: US (occurrence: US)
  Receive Date: 20101124
  Receipt Date: 20121106
  Transmission Date: 20130627
  Serious: Yes (Hospitalization, Other)
  Sender: FDA-Public Use
  Company Number: US-PFIZER INC-2009314323

PATIENT
  Age: 11 Month
  Sex: Female
  Weight: 9 kg

DRUGS (13)
  1. DILANTIN [Suspect]
     Indication: SEIZURE
     Dosage: 25mg in the morning and 50mg in the evening
     Route: 048
     Dates: start: 20080731, end: 20080808
  2. DILANTIN [Suspect]
     Dosage: 50 mg, 2x/day
     Route: 048
     Dates: start: 20080808, end: 20080814
  3. DILANTIN [Suspect]
     Dosage: 37.5 mg, 2x/day
     Route: 048
     Dates: start: 20080805
  4. FOSPHENYTOIN [Concomitant]
     Dosage: UNK
  5. PHENOBARBITAL [Concomitant]
     Dosage: 20 mg, 2x/day
     Route: 048
  6. TEGRETAL [Concomitant]
     Dosage: UNK
  7. KEPPRA [Concomitant]
     Dosage: UNK
  8. TRILEPTAL [Concomitant]
     Dosage: UNK
  9. VALIUM [Concomitant]
     Dosage: 6 mg, UNK
  10. ATIVAN [Concomitant]
     Dosage: 1.2 mg, UNK
  11. CEFTRIAXONE [Concomitant]
     Dosage: UNK
  12. TYLENOL [Concomitant]
     Dosage: 160 mg, as needed
     Dates: start: 20080731, end: 20080807
  13. LUMINAL [Concomitant]
     Dosage: 20 mg, UNK
     Dates: start: 20080802, end: 20080807

REACTIONS (11)
  - Toxic epidermal necrolysis [Unknown]
  - Stevens-Johnson syndrome [Recovering/Resolving]
  - Cardiomegaly [Recovered/Resolved]
  - Upper motor neurone lesion [Not Recovered/Not Resolved]
  - Deafness neurosensory [Unknown]
  - Rickets [Recovering/Resolving]
  - Abasia [Recovering/Resolving]
  - Lung disorder [Not Recovered/Not Resolved]
  - Developmental delay [Not Recovered/Not Resolved]
  - Speech disorder developmental [Unknown]
  - Gastrointestinal injury [Unknown]
